FAERS Safety Report 25658328 (Version 1)
Quarter: 2025Q3

REPORT INFORMATION
  Report Type: Spontaneous
  Country: EU (occurrence: EU)
  Receive Date: 20250808
  Receipt Date: 20250808
  Transmission Date: 20251021
  Serious: Yes (Hospitalization, Other)
  Sender: UCB
  Company Number: EU-UCBSA-2025047771

PATIENT
  Sex: Male

DRUGS (1)
  1. BRIVIACT [Suspect]
     Active Substance: BRIVARACETAM
     Indication: Epilepsy
     Route: 048
     Dates: start: 20241201

REACTIONS (23)
  - Suicide attempt [Unknown]
  - Seizure [Unknown]
  - Psychotic disorder [Unknown]
  - Suicidal ideation [Unknown]
  - Syncope [Unknown]
  - Petit mal epilepsy [Unknown]
  - Intentional self-injury [Unknown]
  - Personality disorder [Unknown]
  - Dizziness [Unknown]
  - Tremor [Unknown]
  - Fatigue [Unknown]
  - Vertigo [Unknown]
  - Nausea [Unknown]
  - Vomiting [Unknown]
  - Constipation [Unknown]
  - Depression [Unknown]
  - Agitation [Unknown]
  - Anxiety [Unknown]
  - Insomnia [Unknown]
  - Irritability [Unknown]
  - Nervousness [Unknown]
  - Inability to afford medication [Unknown]
  - Drug ineffective [Unknown]
